FAERS Safety Report 7408331-8 (Version None)
Quarter: 2011Q1

REPORT INFORMATION
  Report Type: 
  Country: None (occurrence: None)
  Receive Date: 20110301
  Receipt Date: 20101201
  Transmission Date: 20110831
  Serious: Yes (Disabling)
  Sender: FDA-Public Use
  Company Number: ALA_01159_2010

PATIENT
  Sex: Female

DRUGS (2)
  1. REGLAN [Suspect]
     Indication: ABDOMINAL PAIN
     Dosage: (10MG ORAL)
     Route: 048
     Dates: start: 20061001, end: 20070801
  2. REGLAN [Suspect]
     Indication: GASTROINTESTINAL DISORDER
     Dosage: (10MG ORAL)
     Route: 048
     Dates: start: 20061001, end: 20070801

REACTIONS (3)
  - TARDIVE DYSKINESIA [None]
  - DYSKINESIA [None]
  - INCORRECT DRUG ADMINISTRATION DURATION [None]
